FAERS Safety Report 6546944-6 (Version None)
Quarter: 2010Q1

REPORT INFORMATION
  Report Type: 
  Country: None (occurrence: None)
  Receive Date: 20100122
  Receipt Date: 20091201
  Transmission Date: 20100710
  Serious: Yes (Death)
  Sender: FDA-Public Use
  Company Number: A0748444A

PATIENT
  Age: 55 Year
  Sex: Male
  Weight: 104.5 kg

DRUGS (12)
  1. AVANDIA [Suspect]
     Dosage: 8MG PER DAY
     Route: 048
     Dates: start: 20020601, end: 20070602
  2. CLARITIN [Concomitant]
  3. GEMFIBROZIL [Concomitant]
  4. NABUMETONE [Concomitant]
  5. ZESTRIL [Concomitant]
  6. VIAGRA [Concomitant]
  7. HUMALOG [Concomitant]
  8. LIPITOR [Concomitant]
  9. LISINOPRIL [Concomitant]
  10. ALLEGRA [Concomitant]
  11. VIOXX [Concomitant]
  12. KENALOG [Concomitant]

REACTIONS (1)
  - MYOCARDIAL INFARCTION [None]
